FAERS Safety Report 5577592-2 (Version None)
Quarter: 2007Q4

REPORT INFORMATION
  Report Type: 
  Country: None (occurrence: None)
  Receive Date: 20071130
  Receipt Date: 20070917
  Transmission Date: 20080405
  Serious: No
  Sender: FDA-Public Use
  Company Number: US200709003607

PATIENT
  Age: 65 Year
  Sex: Female

DRUGS (3)
  1. BYETTA [Suspect]
     Indication: TYPE 2 DIABETES MELLITUS
     Dosage: 5 UG, EACH MORNING, SUBCUTANEOUS
     Route: 058
     Dates: start: 20051201
  2. GLUCOTROL XL [Concomitant]
  3. ZANTAC 150 [Concomitant]

REACTIONS (4)
  - BLOOD PRESSURE INCREASED [None]
  - DIARRHOEA [None]
  - NAUSEA [None]
  - VOMITING [None]
